FAERS Safety Report 5569470-X (Version None)
Quarter: 2007Q4

REPORT INFORMATION
  Report Type: 
  Country: None (occurrence: None)
  Receive Date: 20071220
  Receipt Date: 20071213
  Transmission Date: 20080405
  Serious: Yes (Death)
  Sender: FDA-Public Use
  Company Number: JP-SANOFI-SYNTHELABO-A01200713989

PATIENT

DRUGS (24)
  1. SYMMETREL [Concomitant]
     Indication: DRUG USE FOR UNKNOWN INDICATION
     Route: 065
  2. PLETAL [Concomitant]
     Indication: DRUG USE FOR UNKNOWN INDICATION
     Dosage: UNK
     Route: 065
  3. INOVAN [Concomitant]
     Indication: DRUG USE FOR UNKNOWN INDICATION
     Dosage: 5 GAMMA
     Route: 065
  4. HANP [Concomitant]
     Indication: DRUG USE FOR UNKNOWN INDICATION
     Dosage: UNK
     Route: 065
  5. NEUART [Concomitant]
     Indication: DRUG USE FOR UNKNOWN INDICATION
     Route: 065
  6. PAZUCROSS [Concomitant]
     Indication: DRUG USE FOR UNKNOWN INDICATION
     Route: 065
  7. PHENYTOIN SODIUM CAP [Concomitant]
     Indication: DRUG USE FOR UNKNOWN INDICATION
     Route: 065
  8. UNASYN [Concomitant]
     Indication: DRUG USE FOR UNKNOWN INDICATION
     Route: 065
  9. RADICUT [Concomitant]
     Indication: DRUG USE FOR UNKNOWN INDICATION
     Route: 065
  10. PERDIPIN [Concomitant]
     Indication: DRUG USE FOR UNKNOWN INDICATION
     Dosage: UNK
     Route: 065
  11. VASOLAN [Concomitant]
     Indication: DRUG USE FOR UNKNOWN INDICATION
     Route: 065
  12. DIGILANOGEN C [Concomitant]
     Indication: DRUG USE FOR UNKNOWN INDICATION
     Route: 065
  13. TRANSAMIN [Concomitant]
     Indication: DRUG USE FOR UNKNOWN INDICATION
     Dosage: UNK
     Route: 065
  14. ADONA [Concomitant]
     Indication: DRUG USE FOR UNKNOWN INDICATION
     Dosage: UNK
     Route: 065
  15. ALDACTONE [Concomitant]
     Indication: DRUG USE FOR UNKNOWN INDICATION
     Route: 065
  16. LASIX [Concomitant]
     Indication: DRUG USE FOR UNKNOWN INDICATION
     Route: 065
  17. BLOPRESS [Concomitant]
     Indication: DRUG USE FOR UNKNOWN INDICATION
     Route: 065
  18. VOLTAREN [Concomitant]
     Indication: DRUG USE FOR UNKNOWN INDICATION
     Route: 065
  19. ASPIRIN [Concomitant]
     Indication: CEREBRAL INFARCTION
     Route: 065
  20. ASPIRIN [Concomitant]
     Indication: ANGINA PECTORIS
     Route: 065
  21. ASPIRIN [Concomitant]
     Indication: ARTERIOSCLEROSIS OBLITERANS
     Route: 065
  22. PLAVIX [Suspect]
     Indication: CEREBRAL INFARCTION
     Route: 048
  23. PLAVIX [Suspect]
     Indication: ANGINA PECTORIS
     Route: 048
  24. PLAVIX [Suspect]
     Indication: ARTERIOSCLEROSIS OBLITERANS
     Route: 048

REACTIONS (4)
  - ATRIAL FIBRILLATION [None]
  - CEREBRAL INFARCTION [None]
  - EPISTAXIS [None]
  - MULTI-ORGAN FAILURE [None]
